FAERS Safety Report 10234592 (Version 1)
Quarter: 2014Q2

REPORT INFORMATION
  Report Type: Report from Study
  Country: GB (occurrence: GB)
  Receive Date: 20140613
  Receipt Date: 20140613
  Transmission Date: 20141212
  Serious: Yes (Death)
  Sender: FDA-Public Use
  Company Number: GB-AMGEN INC.-GBRCT2014043882

PATIENT
  Age: 60 Year
  Sex: Male
  Weight: 140.2 kg

DRUGS (12)
  1. ETANERCEPT [Suspect]
     Indication: PRODUCT USED FOR UNKNOWN INDICATION
     Dosage: UNK UNK, QWK
     Route: 065
     Dates: start: 20090420, end: 20090715
  2. ACETYLSALICYLIC ACID [Concomitant]
     Dosage: UNK
     Dates: start: 19990115
  3. DILTIAZEM [Concomitant]
     Dosage: UNK
     Dates: start: 19990115
  4. ISOSORBIDE MONONITRATE [Concomitant]
     Dosage: UNK
     Dates: start: 19990115
  5. OMEPRAZOLE [Concomitant]
     Dosage: UNK
     Dates: start: 20060115
  6. SALBUTAMOL [Concomitant]
     Dosage: UNK
     Dates: start: 19990101
  7. SERETIDE [Concomitant]
     Dosage: UNK
     Dates: start: 19990101
  8. SIMVASTATIN [Concomitant]
     Dosage: UNK
     Dates: start: 19990101
  9. CICLOSPORIN [Concomitant]
     Dosage: UNK
     Dates: start: 20111104
  10. PREDNISOLONE [Concomitant]
     Dosage: UNK
     Dates: start: 20120311, end: 20120319
  11. PREDNISOLONE [Concomitant]
     Dosage: UNK
     Dates: start: 20120420, end: 20120426
  12. PREDNISOLONE [Concomitant]
     Dosage: UNK
     Dates: start: 20130220, end: 20130227

REACTIONS (1)
  - Death [Fatal]
